FAERS Safety Report 9735112 (Version 1)
Quarter: 2013Q4

REPORT INFORMATION
  Report Type: Report from Study
  Country: IT (occurrence: IT)
  Receive Date: 20131206
  Receipt Date: 20131206
  Transmission Date: 20140711
  Serious: Yes (Death, Hospitalization)
  Sender: FDA-Public Use
  Company Number: IT-TEVA-448936USA

PATIENT
  Age: 60 Year
  Sex: Female
  Weight: 60 kg

DRUGS (9)
  1. BENDAMUSTINE [Suspect]
     Dosage: 600 MILLIGRAM DAILY;
     Dates: start: 20131003, end: 20131004
  2. VEPESID [Suspect]
     Dates: start: 20131005, end: 20131008
  3. MELPHALAN [Suspect]
     Dosage: UID/QD
     Dates: start: 20131009, end: 20131009
  4. ARA-C [Suspect]
     Dosage: 2400 MILLIGRAM DAILY;
     Dates: start: 20131005, end: 20131008
  5. TIGECYLCINE [Concomitant]
     Indication: PNEUMONITIS
     Dosage: 50 MILLIGRAM DAILY;
     Dates: start: 20131024, end: 20131103
  6. ALBUMIN [Concomitant]
     Dosage: 50 GRAM DAILY;
     Dates: start: 20131017, end: 20131031
  7. FUROSEMIDE [Concomitant]
     Indication: POLYURIA
     Dates: start: 20131012, end: 20131103
  8. CALCIUM GLUCONATE [Concomitant]
     Indication: PLEURAL EFFUSION
     Dosage: 10 ML DAILY;
     Dates: start: 20131008, end: 20131103
  9. MEROPENEM [Concomitant]
     Dosage: 2 GRAM DAILY;
     Dates: start: 20131017, end: 20131023

REACTIONS (10)
  - Death [Fatal]
  - Atrial fibrillation [Unknown]
  - Blood bilirubin increased [Unknown]
  - Ascites [Unknown]
  - Pleural effusion [Unknown]
  - Pneumonitis [Unknown]
  - Mucosal inflammation [Unknown]
  - Gamma-glutamyltransferase increased [Unknown]
  - Hypotension [Unknown]
  - Diarrhoea [Unknown]
